FAERS Safety Report 17768601 (Version 1)
Quarter: 2020Q2

REPORT INFORMATION
  Report Type: Spontaneous
  Country: US (occurrence: US)
  Receive Date: 20200512
  Receipt Date: 20200512
  Transmission Date: 20200714
  Serious: Yes (Other)
  Sender: FDA-Public Use
  Company Number: US-AMGEN-USASP2020073608

PATIENT
  Age: 72 Year
  Sex: Female

DRUGS (1)
  1. ENBREL [Suspect]
     Active Substance: ETANERCEPT
     Indication: ANKYLOSING SPONDYLITIS
     Dosage: UNK
     Route: 065
     Dates: start: 2016

REACTIONS (5)
  - Cataract operation [Unknown]
  - Ankylosing spondylitis [Unknown]
  - Photophobia [Unknown]
  - Intraocular pressure increased [Unknown]
  - Halo vision [Unknown]

NARRATIVE: CASE EVENT DATE: 2020
